FAERS Safety Report 21923108 (Version 1)
Quarter: 2023Q1

REPORT INFORMATION
  Report Type: Spontaneous
  Country: CA (occurrence: CA)
  Receive Date: 20230129
  Receipt Date: 20230129
  Transmission Date: 20230418
  Serious: Yes (Hospitalization)
  Sender: FDA-Public Use
  Company Number: CA-002147023-NVSC2023CA015664

PATIENT
  Age: 84 Year
  Sex: Female

DRUGS (1)
  1. AMLODIPINE BESYLATE [Suspect]
     Active Substance: AMLODIPINE BESYLATE
     Indication: Blood pressure measurement
     Dosage: UNK
     Route: 065

REACTIONS (6)
  - Asthenia [Unknown]
  - COVID-19 [Unknown]
  - Constipation [Unknown]
  - Creatinine renal clearance decreased [Unknown]
  - Urinary retention [Unknown]
  - Illness [Unknown]
